FAERS Safety Report 7579270-7 (Version None)
Quarter: 2011Q2

REPORT INFORMATION
  Report Type: 
  Country: None (occurrence: None)
  Receive Date: 20110628
  Receipt Date: 20110608
  Transmission Date: 20111010
  Serious: Yes (Other)
  Sender: FDA-Public Use
  Company Number: DE-GENENTECH-320771

PATIENT
  Sex: Female

DRUGS (2)
  1. VITAMIN TAB [Concomitant]
     Indication: PRODUCT USED FOR UNKNOWN INDICATION
  2. LUCENTIS [Suspect]
     Indication: MACULAR DEGENERATION
     Dosage: UNK UNK, UNK
     Route: 031

REACTIONS (3)
  - COLOUR BLINDNESS ACQUIRED [None]
  - CONJUNCTIVAL HAEMORRHAGE [None]
  - EYE INJURY [None]
